FAERS Safety Report 13266227 (Version 2)
Quarter: 2017Q1

REPORT INFORMATION
  Report Type: Report from Study
  Country: None (occurrence: AT)
  Receive Date: 20170223
  Receipt Date: 20170306
  Transmission Date: 20170428
  Serious: Yes (Death)
  Sender: FDA-Public Use
  Company Number: AT-ABBVIE-17P-009-1834632-00

PATIENT
  Age: 77 Year
  Sex: Female

DRUGS (7)
  1. AMANTADIN [Concomitant]
     Active Substance: AMANTADINE
     Indication: DYSKINESIA
     Dates: start: 20170119, end: 20170217
  2. TORASEMID [Concomitant]
     Active Substance: TORSEMIDE
     Indication: CARDIAC DISORDER
  3. MIRTAZAPIN [Concomitant]
     Active Substance: MIRTAZAPINE
     Indication: DEPRESSION
  4. DUODOPA [Suspect]
     Active Substance: CARBIDOPA\LEVODOPA
     Indication: PARKINSON^S DISEASE
     Dosage: MD: 7ML; CR: 1.9ML/H; ED: 0.8ML
     Route: 050
     Dates: start: 20161209
  5. DUODOPA [Suspect]
     Active Substance: CARBIDOPA\LEVODOPA
     Dosage: 16 H THERAPY: MD: 3.5 ML; CRT: 2.2 ML/H; ED: 1 ML
     Route: 050
     Dates: start: 20161212
  6. BISOPROLOL [Concomitant]
     Active Substance: BISOPROLOL
     Indication: CARDIAC DISORDER
  7. ROTIGOTIN PATCH [Concomitant]
     Indication: PARKINSON^S DISEASE
     Route: 062

REACTIONS (3)
  - Cardiac arrest [Fatal]
  - Drug effect variable [Recovering/Resolving]
  - Device dislocation [Not Recovered/Not Resolved]

NARRATIVE: CASE EVENT DATE: 20170217
